FAERS Safety Report 6565157-5 (Version None)
Quarter: 2010Q1

REPORT INFORMATION
  Report Type: 
  Country: None (occurrence: None)
  Receive Date: 20100201
  Receipt Date: 20100121
  Transmission Date: 20100710
  Serious: Yes (Life-Threatening, Hospitalization)
  Sender: FDA-Public Use
  Company Number: B0628259A

PATIENT
  Age: 67 Year
  Sex: Male
  Weight: 65 kg

DRUGS (12)
  1. ACYCLOVIR [Suspect]
     Indication: PROPHYLAXIS
     Dosage: 800MG PER DAY
     Route: 048
     Dates: start: 20080630, end: 20080709
  2. ALLOPURINOL [Suspect]
     Dosage: 100MG PER DAY
     Route: 048
  3. CO-TRIMOXAZOLE [Suspect]
     Indication: PROPHYLAXIS
     Dates: start: 20080702, end: 20080704
  4. CEFTAZIDIME [Suspect]
     Dosage: 6MG PER DAY
     Dates: start: 20080627, end: 20080629
  5. ITRACONAZOLE [Suspect]
     Indication: PROPHYLAXIS
     Dosage: 400MG PER DAY
     Dates: start: 20080627, end: 20080706
  6. CLADRIBINE [Suspect]
     Dosage: 9.2MG PER DAY
     Route: 058
     Dates: start: 20080701, end: 20080705
  7. BENDROFLUMETHIAZIDE [Suspect]
     Indication: HYPERTENSION
     Dosage: 2.5MG PER DAY
     Route: 048
  8. SIMVASTATIN [Suspect]
     Dosage: 20MG PER DAY
     Route: 048
  9. CIPROFLOXACIN [Suspect]
     Indication: INFECTION PROPHYLAXIS
     Dosage: 1000MG PER DAY
     Route: 048
     Dates: start: 20080627, end: 20080706
  10. ZOPICLONE [Suspect]
     Dates: start: 20080627, end: 20080706
  11. AMPHOTERICIN B [Suspect]
     Dosage: 40MG PER DAY
     Dates: start: 20080627, end: 20080706
  12. CLARITHROMYCIN [Suspect]
     Dates: start: 20080627, end: 20080629

REACTIONS (10)
  - ACUTE MYOCARDIAL INFARCTION [None]
  - BRADYARRHYTHMIA [None]
  - DISSEMINATED INTRAVASCULAR COAGULATION [None]
  - HYPERBILIRUBINAEMIA [None]
  - HYPOTENSION [None]
  - LEUKOCYTOCLASTIC VASCULITIS [None]
  - PYREXIA [None]
  - RENAL IMPAIRMENT [None]
  - SEPTIC SHOCK [None]
  - SWELLING FACE [None]
